FAERS Safety Report 5026354-3 (Version None)
Quarter: 2006Q2

REPORT INFORMATION
  Report Type: 
  Country: None (occurrence: None)
  Receive Date: 20060608
  Receipt Date: 20030107
  Transmission Date: 20061013
  Serious: No
  Sender: FDA-Public Use
  Company Number: 2003-01-1707

PATIENT
  Sex: Male
  Weight: 116 kg

DRUGS (4)
  1. ETHYOL [Suspect]
     Indication: PROPHYLAXIS
     Dosage: INTRAVENOUS
     Route: 042
     Dates: start: 20021021, end: 20021122
  2. CISPLATIN [Suspect]
     Indication: SQUAMOUS CELL CARCINOMA
     Dosage: INTRAVENOUS
     Route: 042
  3. RADIATION THERAPY [Suspect]
     Indication: SQUAMOUS CELL CARCINOMA
     Dosage: OTHER
     Route: 050
  4. ZOFRAN [Concomitant]

REACTIONS (5)
  - APHAGIA [None]
  - FLUID INTAKE REDUCED [None]
  - FLUSHING [None]
  - MUCOSAL INFLAMMATION [None]
  - WEIGHT DECREASED [None]
